FAERS Safety Report 9775453 (Version 4)
Quarter: 2014Q3

REPORT INFORMATION
  Report Type: Spontaneous
  Country: JP (occurrence: JP)
  Receive Date: 20131220
  Receipt Date: 20140722
  Transmission Date: 20150326
  Serious: Yes (Other)
  Sender: FDA-Public Use
  Company Number: JP-NAPPMUNDI-GBR-2013-0016620

PATIENT
  Age: 59 Year
  Sex: Male

DRUGS (13)
  1. OXYCODONE HYDROCHLORIDE. [Suspect]
     Active Substance: OXYCODONE HYDROCHLORIDE
     Dosage: 2 MG, SINGLE
     Route: 042
     Dates: start: 20131117, end: 20131117
  2. OXYCODONE HYDROCHLORIDE. [Suspect]
     Active Substance: OXYCODONE HYDROCHLORIDE
     Dosage: 2.6 MG, TWICE
     Route: 042
     Dates: start: 20131114, end: 20131114
  3. OXYCODONE HYDROCHLORIDE. [Suspect]
     Active Substance: OXYCODONE HYDROCHLORIDE
     Dosage: 1.66 MG, Q1H
     Route: 042
     Dates: start: 20131113, end: 20131113
  4. OXYCODONE HYDROCHLORIDE. [Suspect]
     Active Substance: OXYCODONE HYDROCHLORIDE
     Dosage: 1.2 MG, Q1H
     Route: 042
     Dates: start: 20131116, end: 20131116
  5. OXYCODONE HYDROCHLORIDE. [Suspect]
     Active Substance: OXYCODONE HYDROCHLORIDE
     Dosage: 3.2 MG, Q1H
     Route: 042
     Dates: start: 20131115, end: 20131115
  6. OXYCODONE HYDROCHLORIDE. [Suspect]
     Active Substance: OXYCODONE HYDROCHLORIDE
     Dosage: 1.66 MG, 6 TIMES
     Route: 042
     Dates: start: 20131114, end: 20131114
  7. OXYCODONE HYDROCHLORIDE. [Suspect]
     Active Substance: OXYCODONE HYDROCHLORIDE
     Dosage: 2.6 MG, Q1H
     Route: 042
     Dates: start: 20131114, end: 20131114
  8. OXYCODONE HYDROCHLORIDE. [Suspect]
     Active Substance: OXYCODONE HYDROCHLORIDE
     Indication: PRODUCT USED FOR UNKNOWN INDICATION
     Dosage: 2 MG, SINGLE
     Route: 042
     Dates: start: 20131117, end: 20131117
  9. OXYCODONE HYDROCHLORIDE. [Suspect]
     Active Substance: OXYCODONE HYDROCHLORIDE
     Dosage: 2.6 MG, THRICE
     Route: 042
     Dates: start: 20131115, end: 20131115
  10. OXYCODONE HYDROCHLORIDE. [Suspect]
     Active Substance: OXYCODONE HYDROCHLORIDE
     Dosage: 2 MG, Q1H
     Route: 042
     Dates: start: 20131116, end: 20131118
  11. OXYCODONE HYDROCHLORIDE. [Suspect]
     Active Substance: OXYCODONE HYDROCHLORIDE
     Dosage: 1.2 MG, TWICE
     Route: 042
     Dates: start: 20131116, end: 20131116
  12. OXYCODONE HYDROCHLORIDE. [Suspect]
     Active Substance: OXYCODONE HYDROCHLORIDE
     Dosage: 1.66 MG, THRICE
     Route: 042
     Dates: start: 20131113, end: 20131113
  13. OXYCODONE HYDROCHLORIDE. [Suspect]
     Active Substance: OXYCODONE HYDROCHLORIDE
     Dosage: 3.2 MG, TWICE
     Route: 042
     Dates: start: 20131115, end: 20131115

REACTIONS (1)
  - Delirium [Recovered/Resolved]

NARRATIVE: CASE EVENT DATE: 20131115
